FAERS Safety Report 23463238 (Version 1)
Quarter: 2024Q1

REPORT INFORMATION
  Report Type: Spontaneous
  Country: FR (occurrence: FR)
  Receive Date: 20240131
  Receipt Date: 20240131
  Transmission Date: 20240410
  Serious: Yes (Hospitalization)
  Sender: FDA-Public Use
  Company Number: None

PATIENT
  Age: 83 Year
  Sex: Male

DRUGS (3)
  1. PACLITAXEL [Suspect]
     Active Substance: PACLITAXEL
     Indication: Lung neoplasm malignant
     Route: 042
     Dates: start: 20230822
  2. CARBOPLATIN [Suspect]
     Active Substance: CARBOPLATIN
     Indication: Lung neoplasm malignant
     Dosage: INTRAVENOUS
     Dates: start: 20230822
  3. OFEV [Concomitant]
     Active Substance: NINTEDANIB
     Indication: Product used for unknown indication

REACTIONS (8)
  - Acute kidney injury [Recovering/Resolving]
  - Diarrhoea [Recovering/Resolving]
  - Orthostatic hypotension [Recovering/Resolving]
  - Bone marrow failure [Recovering/Resolving]
  - General physical health deterioration [Recovering/Resolving]
  - Clinomania [Recovering/Resolving]
  - Diarrhoea [Recovering/Resolving]
  - Dyspnoea [Recovering/Resolving]

NARRATIVE: CASE EVENT DATE: 20231001
